FAERS Safety Report 18758707 (Version 3)
Quarter: 2021Q1

REPORT INFORMATION
  Report Type: Report from Study
  Country: IE (occurrence: IE)
  Receive Date: 20210120
  Receipt Date: 20210318
  Transmission Date: 20210419
  Serious: Yes (Hospitalization, Other)
  Sender: FDA-Public Use
  Company Number: IE-JNJFOC-20201041775

PATIENT
  Age: 71 Year
  Sex: Male

DRUGS (15)
  1. TARGIN [Concomitant]
     Active Substance: NALOXONE HYDROCHLORIDE\OXYCODONE HYDROCHLORIDE
     Route: 050
  2. ZOPICLONE [Concomitant]
     Active Substance: ZOPICLONE
     Route: 050
  3. QUININE [Concomitant]
     Active Substance: QUININE
     Route: 050
  4. OXYNORM [Concomitant]
     Active Substance: OXYCODONE HYDROCHLORIDE
     Route: 050
  5. ZYTIGA [Suspect]
     Active Substance: ABIRATERONE ACETATE
     Indication: PROSTATE CANCER
     Route: 048
     Dates: start: 20201008, end: 202101
  6. ULTIBRO [Concomitant]
     Active Substance: GLYCOPYRRONIUM\INDACATEROL
  7. FLIXOTIDE [Concomitant]
     Active Substance: FLUTICASONE PROPIONATE
     Route: 050
  8. SOLPADEINE [Concomitant]
  9. PREDNISOLONE. [Concomitant]
     Active Substance: PREDNISOLONE
     Route: 050
  10. IRON [Concomitant]
     Active Substance: IRON
     Route: 050
  11. PANTOPRAZOLE [Concomitant]
     Active Substance: PANTOPRAZOLE
     Route: 050
  12. UNIPHYLLIN [Concomitant]
     Active Substance: THEOPHYLLINE ANHYDROUS
     Route: 050
  13. PARACETAMOL [Concomitant]
     Active Substance: ACETAMINOPHEN
     Route: 050
  14. FENTANYL. [Concomitant]
     Active Substance: FENTANYL
     Route: 050
  15. LYRICA [Concomitant]
     Active Substance: PREGABALIN
     Route: 050

REACTIONS (8)
  - Pulmonary embolism [Unknown]
  - Incorrect dose administered [Unknown]
  - Off label use [Unknown]
  - Sepsis [Not Recovered/Not Resolved]
  - Anal abscess [Not Recovered/Not Resolved]
  - Micturition disorder [Not Recovered/Not Resolved]
  - Rectal haemorrhage [Not Recovered/Not Resolved]
  - Haemoglobin decreased [Not Recovered/Not Resolved]

NARRATIVE: CASE EVENT DATE: 20201008
